FAERS Safety Report 19993570 (Version 2)
Quarter: 2021Q4

REPORT INFORMATION
  Report Type: Report from Study
  Country: EG (occurrence: EG)
  Receive Date: 20211025
  Receipt Date: 20211102
  Transmission Date: 20220304
  Serious: Yes (Other)
  Sender: FDA-Public Use
  Company Number: EG-NOVARTISPH-NVSC2021EG240030

PATIENT
  Age: 67 Year
  Sex: Male

DRUGS (9)
  1. ENTRESTO [Suspect]
     Active Substance: SACUBITRIL\VALSARTAN
     Indication: Cardiac failure
     Dosage: 250 MG, BID (ONE TABLET ENTRESTO 100 MG IN THE MORNING ALONG WITH ONE TABLET ENTRESTO 100 MG PLUS ON
     Route: 048
     Dates: start: 20190401
  2. NITROMACK [Concomitant]
     Indication: Cardiac disorder
     Dosage: 1 DF, QD (AT NIGHT)
     Route: 065
  3. VASTAREL [Concomitant]
     Active Substance: TRIMETAZIDINE DIHYDROCHLORIDE
     Indication: Anticoagulant therapy
     Dosage: 1 DF, BID
     Route: 065
  4. CRESTOR [Concomitant]
     Active Substance: ROSUVASTATIN CALCIUM
     Indication: Cardiac disorder
     Dosage: 1 DF, QD
     Route: 065
  5. PLAVIX [Concomitant]
     Active Substance: CLOPIDOGREL BISULFATE
     Indication: Anticoagulant therapy
     Dosage: 1 DF, QD
     Route: 065
  6. LANOXIN [Concomitant]
     Active Substance: DIGOXIN
     Indication: Cardiac disorder
     Dosage: 1 DF, QD (IN THE MORNING)
     Route: 065
  7. TORSEMIDE [Concomitant]
     Active Substance: TORSEMIDE
     Indication: Diuretic therapy
     Dosage: 1 DF, QD
     Route: 065
  8. PIRFENIDONE [Concomitant]
     Active Substance: PIRFENIDONE
     Indication: Chest discomfort
     Dosage: 2 DF, TID
     Route: 065
     Dates: start: 202109
  9. PIRFENIDONE [Concomitant]
     Active Substance: PIRFENIDONE
     Indication: Lung disorder
     Dosage: 1 DF, QD
     Route: 065

REACTIONS (7)
  - Hyperhidrosis [Not Recovered/Not Resolved]
  - Lung disorder [Recovering/Resolving]
  - Concomitant disease aggravated [Recovering/Resolving]
  - Incorrect dose administered [Not Recovered/Not Resolved]
  - Cholelithiasis [Not Recovered/Not Resolved]
  - Ejection fraction decreased [Not Recovered/Not Resolved]
  - Fatigue [Unknown]

NARRATIVE: CASE EVENT DATE: 20210201
